FAERS Safety Report 8315300-2 (Version None)
Quarter: 2012Q2

REPORT INFORMATION
  Report Type: 
  Country: None (occurrence: None)
  Receive Date: 20120426
  Receipt Date: 20120419
  Transmission Date: 20120825
  Serious: Yes (Hospitalization, Other)
  Sender: FDA-Public Use
  Company Number: JP-PFIZER INC-2012075125

PATIENT
  Age: 78 Year
  Sex: Female
  Weight: 50 kg

DRUGS (3)
  1. IRESSA [Concomitant]
     Dosage: 250 MG, 1X/DAY
     Route: 048
     Dates: start: 20110819
  2. CORTRIL [Suspect]
     Dosage: 10 MG, 1X/DAY
     Route: 048
  3. IRESSA [Concomitant]
     Indication: LUNG NEOPLASM MALIGNANT
     Dosage: 250 MG, ALTERNATE DAY
     Route: 048
     Dates: start: 20110728

REACTIONS (4)
  - SPINAL COMPRESSION FRACTURE [None]
  - PATHOLOGICAL FRACTURE [None]
  - OSTEOGENESIS IMPERFECTA [None]
  - FALL [None]
